FAERS Safety Report 13693360 (Version 1)
Quarter: 2017Q2

REPORT INFORMATION
  Report Type: Spontaneous
  Country: IT (occurrence: IT)
  Receive Date: 20170627
  Receipt Date: 20170627
  Transmission Date: 20170830
  Serious: Yes (Death, Life-Threatening)
  Sender: FDA-Public Use
  Company Number: IT-B. BRAUN MEDICAL INC.-2022526

PATIENT
  Age: 80 Year
  Sex: Male

DRUGS (5)
  1. AMOXICILLIN AND CLAVULANIC ACID [Suspect]
     Active Substance: AMOXICILLIN\CLAVULANIC ACID
     Route: 042
     Dates: start: 20170330
  2. TEICOPLANIN [Suspect]
     Active Substance: TEICOPLANIN
     Route: 042
     Dates: start: 20170330, end: 20170410
  3. METRONIDAZOLE. [Suspect]
     Active Substance: METRONIDAZOLE
     Indication: INFECTION
     Route: 042
     Dates: start: 20170330, end: 20170417
  4. CEFTRIAXONE. [Suspect]
     Active Substance: CEFTRIAXONE
     Route: 042
     Dates: start: 20170330, end: 20170417
  5. LINEZOLID. [Concomitant]
     Active Substance: LINEZOLID

REACTIONS (3)
  - Hepatic failure [Fatal]
  - Hyperbilirubinaemia [Fatal]
  - Abscess [None]

NARRATIVE: CASE EVENT DATE: 20170407
